FAERS Safety Report 24670849 (Version 2)
Quarter: 2025Q3

REPORT INFORMATION
  Report Type: Spontaneous
  Country: EU (occurrence: EU)
  Receive Date: 20241127
  Receipt Date: 20250809
  Transmission Date: 20251020
  Serious: Yes (Hospitalization)
  Sender: ALEXION PHARMACEUTICALS
  Company Number: None

PATIENT
  Age: 24 Day
  Sex: Male
  Weight: 3.79 kg

DRUGS (3)
  1. NIRSEVIMAB [Suspect]
     Active Substance: NIRSEVIMAB
     Indication: Antiviral prophylaxis
     Dates: start: 20241004, end: 20241004
  2. LEVOTHYROXINE SODIUM [Suspect]
     Active Substance: LEVOTHYROXINE SODIUM
     Indication: Congenital hypothyroidism
     Dosage: 8 DROP, QD
     Route: 065
     Dates: start: 20240920
  3. CHOLECALCIFEROL [Suspect]
     Active Substance: CHOLECALCIFEROL
     Indication: Prophylaxis
     Dosage: 2 DROP, QD
     Route: 065
     Dates: start: 20240913

REACTIONS (2)
  - Supraventricular tachycardia [Not Recovered/Not Resolved]
  - Accelerated idioventricular rhythm [Not Recovered/Not Resolved]

NARRATIVE: CASE EVENT DATE: 20241006
